FAERS Safety Report 23287024 (Version 2)
Quarter: 2024Q1

REPORT INFORMATION
  Report Type: Spontaneous
  Country: US (occurrence: None)
  Receive Date: 20231212
  Receipt Date: 20240115
  Transmission Date: 20240410
  Serious: No
  Sender: FDA-Public Use
  Company Number: 2023A272632

PATIENT

DRUGS (1)
  1. SYMBICORT [Suspect]
     Active Substance: BUDESONIDE\FORMOTEROL FUMARATE DIHYDRATE
     Dosage: UNKNOWN UNKNOWN
     Route: 055
     Dates: start: 20070101

REACTIONS (5)
  - Visual impairment [Unknown]
  - Chronic obstructive pulmonary disease [Unknown]
  - Device physical property issue [Unknown]
  - Device delivery system issue [Unknown]
  - Product packaging quantity issue [Unknown]
